FAERS Safety Report 4638851-0 (Version None)
Quarter: 2005Q2

REPORT INFORMATION
  Report Type: 
  Country: None (occurrence: None)
  Receive Date: 20050414
  Receipt Date: 20050414
  Transmission Date: 20051028
  Serious: Yes (Other)
  Sender: FDA-Public Use
  Company Number: None

PATIENT
  Sex: Female
  Weight: 53.0709 kg

DRUGS (2)
  1. EFFEXOR [Suspect]
     Indication: DEPRESSION
     Dosage: 75-150 EVERY DAY
     Dates: start: 19991101, end: 20030601
  2. LEXAPRO [Suspect]
     Indication: DEPRESSION
     Dosage: 10 MG  EVERYDAY
     Dates: start: 20031001

REACTIONS (3)
  - DRUG DEPENDENCE [None]
  - DRUG WITHDRAWAL SYNDROME [None]
  - THERAPEUTIC RESPONSE DECREASED [None]
